FAERS Safety Report 5582908-7 (Version None)
Quarter: 2008Q1

REPORT INFORMATION
  Report Type: 
  Country: None (occurrence: None)
  Receive Date: 20080107
  Receipt Date: 20080102
  Transmission Date: 20080703
  Serious: Yes (Hospitalization)
  Sender: FDA-Public Use
  Company Number: US-AVENTIS-200810039US

PATIENT
  Age: 77 Year
  Sex: Male

DRUGS (4)
  1. LANTUS [Suspect]
     Route: 051
     Dates: start: 20050101, end: 20061001
  2. LANTUS [Suspect]
     Route: 051
     Dates: start: 20061001
  3. OPTICLIK (INSULIN INJECTION PEN) [Suspect]
     Dates: start: 20050101
  4. NORVASC                            /00972401/ [Concomitant]
     Dosage: DOSE: UNK

REACTIONS (1)
  - TRANSIENT ISCHAEMIC ATTACK [None]
